FAERS Safety Report 4782904-3 (Version None)
Quarter: 2005Q3

REPORT INFORMATION
  Report Type: 
  Country: None (occurrence: None)
  Receive Date: 20050929
  Receipt Date: 20050830
  Transmission Date: 20060218
  Serious: Yes (Disabling)
  Sender: FDA-Public Use
  Company Number: 200517797GDDC

PATIENT
  Age: 86 Year
  Sex: Male

DRUGS (7)
  1. ARAVA [Suspect]
     Indication: RHEUMATOID ARTHRITIS
     Route: 048
     Dates: start: 20050501
  2. RELIFEX [Concomitant]
     Route: 048
     Dates: end: 20050101
  3. PREDNISOLONE [Concomitant]
     Indication: RHEUMATOID ARTHRITIS
     Route: 048
  4. ALBYL-E [Concomitant]
     Indication: ATHEROSCLEROSIS
     Route: 048
  5. IMOVANE [Concomitant]
     Indication: INSOMNIA
     Route: 048
  6. CALCIUM SUPPLEMENT [Concomitant]
     Route: 048
  7. LANSOPRAZOLE [Concomitant]
     Route: 048
     Dates: end: 20050101

REACTIONS (4)
  - CONFUSIONAL STATE [None]
  - DEMENTIA [None]
  - HALLUCINATION [None]
  - MEMORY IMPAIRMENT [None]
